FAERS Safety Report 9341188 (Version 2)
Quarter: 2014Q1

REPORT INFORMATION
  Report Type: Spontaneous
  Country: NO (occurrence: NO)
  Receive Date: 20130611
  Receipt Date: 20140122
  Transmission Date: 20141002
  Serious: Yes (Hospitalization)
  Sender: FDA-Public Use
  Company Number: NO-B.I. PHARMACEUTICALS,INC./RIDGEFIELD-2013-SW-00305NO

PATIENT
  Age: 75 Year
  Sex: Male

DRUGS (3)
  1. PRADAXA [Suspect]
     Indication: ATRIAL FIBRILLATION
     Route: 048
     Dates: end: 20130507
  2. SELO-ZOK [Concomitant]
     Route: 048
  3. LANOXIN [Concomitant]
     Dosage: 0.125 MG
     Route: 048

REACTIONS (3)
  - Cerebrovascular accident [Recovered/Resolved with Sequelae]
  - Transient ischaemic attack [Recovered/Resolved with Sequelae]
  - Drug ineffective [Recovered/Resolved with Sequelae]
